FAERS Safety Report 16462191 (Version 1)
Quarter: 2019Q2

REPORT INFORMATION
  Report Type: Spontaneous
  Country: US (occurrence: US)
  Receive Date: 20190510
  Receipt Date: 20190510
  Transmission Date: 20190711
  Serious: Yes (Death)
  Sender: FDA-Public Use
  Company Number: None

PATIENT
  Age: 13 Year
  Sex: Female

DRUGS (7)
  1. ASPIRIN. [Concomitant]
     Active Substance: ASPIRIN
  2. LETAIRIS [Suspect]
     Active Substance: AMBRISENTAN
     Indication: HEART DISEASE CONGENITAL
     Route: 048
     Dates: start: 201710, end: 201904
  3. MONTELUKAST [Concomitant]
     Active Substance: MONTELUKAST SODIUM
  4. TADALAFIL. [Concomitant]
     Active Substance: TADALAFIL
  5. LEVALBUTEROL HFA [Concomitant]
  6. UPTRAVI [Concomitant]
     Active Substance: SELEXIPAG
  7. LORATADINE. [Concomitant]
     Active Substance: LORATADINE

REACTIONS (5)
  - Oxygen saturation decreased [None]
  - Respiratory distress [None]
  - Pulseless electrical activity [None]
  - Fatigue [None]
  - Chest pain [None]

NARRATIVE: CASE EVENT DATE: 20190428
